FAERS Safety Report 8512611-2 (Version None)
Quarter: 2012Q3

REPORT INFORMATION
  Report Type: 
  Country: None (occurrence: None)
  Receive Date: 20120716
  Receipt Date: 20120710
  Transmission Date: 20120928
  Serious: No
  Sender: FDA-Public Use
  Company Number: US-BAYER-2012-070313

PATIENT

DRUGS (2)
  1. BC POWDER [Suspect]
     Indication: TOOTHACHE
  2. ALEVE (CAPLET) [Suspect]
     Indication: TOOTHACHE

REACTIONS (1)
  - TOOTHACHE [None]
